FAERS Safety Report 9014812 (Version 2)
Quarter: 2013Q1

REPORT INFORMATION
  Report Type: Spontaneous
  Country: DE (occurrence: DE)
  Receive Date: 20130116
  Receipt Date: 20130228
  Transmission Date: 20140127
  Serious: Yes (Other)
  Sender: FDA-Public Use
  Company Number: DE-AMGEN-DEUSP2013001586

PATIENT
  Sex: Female

DRUGS (2)
  1. PROLIA [Suspect]
     Indication: OSTEOPOROSIS POSTMENOPAUSAL
     Dosage: UNK
     Dates: start: 201207
  2. CALCIFEROL                         /00107901/ [Concomitant]
     Dosage: 12 MG, UNK

REACTIONS (11)
  - Osteonecrosis [Unknown]
  - Osteonecrosis of jaw [Unknown]
  - Arthritis [Unknown]
  - Inflammation [Unknown]
  - Pain [Unknown]
  - Blood cholesterol increased [Unknown]
  - Platelet count abnormal [Unknown]
  - Mobility decreased [Unknown]
  - Myositis [Unknown]
  - Cyst [Unknown]
  - Pain in extremity [Unknown]
